FAERS Safety Report 6877346-0 (Version None)
Quarter: 2010Q3

REPORT INFORMATION
  Report Type: 
  Country: None (occurrence: None)
  Receive Date: 20100727
  Receipt Date: 20090921
  Transmission Date: 20110219
  Serious: No
  Sender: FDA-Public Use
  Company Number: US-ABBOTT-09P-163-0598836-00

PATIENT
  Sex: Female
  Weight: 99.88 kg

DRUGS (21)
  1. SYNTHROID [Suspect]
     Indication: THYROID CANCER
     Dosage: VARIOUS DOSES
     Dates: start: 20050101, end: 20090101
  2. LEVOTHYROXINE [Suspect]
     Indication: THYROID CANCER
     Dates: start: 20090101
  3. ATRIPLA [Concomitant]
     Indication: HIV INFECTION
  4. INSULIN U-500 [Concomitant]
     Indication: TYPE 2 DIABETES MELLITUS
  5. FENOFIBRATE [Concomitant]
     Indication: HYPERLIPIDAEMIA
  6. AMBIEN [Concomitant]
     Indication: SLEEP DISORDER THERAPY
  7. ALBUTEROL [Concomitant]
     Indication: PRODUCT USED FOR UNKNOWN INDICATION
  8. ADVAIR DISKUS 100/50 [Concomitant]
     Indication: PRODUCT USED FOR UNKNOWN INDICATION
  9. IMMITREX [Concomitant]
     Indication: PRODUCT USED FOR UNKNOWN INDICATION
  10. XANAX [Concomitant]
     Indication: PRODUCT USED FOR UNKNOWN INDICATION
  11. PERCOCET [Concomitant]
     Indication: PRODUCT USED FOR UNKNOWN INDICATION
  12. ZYRTEC [Concomitant]
     Indication: PRODUCT USED FOR UNKNOWN INDICATION
  13. FLEXERIL [Concomitant]
     Indication: PRODUCT USED FOR UNKNOWN INDICATION
  14. LASIX [Concomitant]
     Indication: PRODUCT USED FOR UNKNOWN INDICATION
  15. LISINOPRIL AND HYDROCHLOROTHIAZIDE [Concomitant]
     Indication: HYPERTENSION
  16. CYMBALTA [Concomitant]
     Indication: PRODUCT USED FOR UNKNOWN INDICATION
  17. TETRACYCLINE [Concomitant]
     Indication: PRODUCT USED FOR UNKNOWN INDICATION
  18. REGLAN [Concomitant]
     Indication: PRODUCT USED FOR UNKNOWN INDICATION
  19. LYRICA [Concomitant]
     Indication: PRODUCT USED FOR UNKNOWN INDICATION
  20. MS CONTIN [Concomitant]
     Indication: PRODUCT USED FOR UNKNOWN INDICATION
  21. TOPAMAX [Concomitant]
     Indication: PRODUCT USED FOR UNKNOWN INDICATION

REACTIONS (1)
  - BLOOD THYROID STIMULATING HORMONE ABNORMAL [None]
